FAERS Safety Report 6838629-3 (Version None)
Quarter: 2010Q3

REPORT INFORMATION
  Report Type: 
  Country: None (occurrence: None)
  Receive Date: 20100713
  Receipt Date: 20070618
  Transmission Date: 20110219
  Serious: No
  Sender: FDA-Public Use
  Company Number: US-PFIZER INC-2007050921

PATIENT
  Sex: Female
  Weight: 71.7 kg

DRUGS (5)
  1. CHANTIX [Suspect]
     Indication: SMOKING CESSATION THERAPY
     Route: 048
     Dates: start: 20070501
  2. ALDACTAZIDE [Concomitant]
  3. METFORMIN [Concomitant]
  4. METHIMAZOLE [Concomitant]
  5. VYTORIN [Concomitant]

REACTIONS (5)
  - ABDOMINAL PAIN [None]
  - BLOOD GLUCOSE INCREASED [None]
  - CONSTIPATION [None]
  - FLATULENCE [None]
  - WEIGHT INCREASED [None]
